FAERS Safety Report 10548248 (Version 1)
Quarter: 2014Q4

REPORT INFORMATION
  Report Type: Spontaneous
  Country: US (occurrence: None)
  Receive Date: 20141027
  Receipt Date: 20141027
  Transmission Date: 20150529
  Serious: No
  Sender: FDA-Public Use
  Company Number: None

PATIENT
  Age: 26 Year
  Sex: Female
  Weight: 74.84 kg

DRUGS (2)
  1. TIOCONAZOLE [Suspect]
     Active Substance: TIOCONAZOLE
     Indication: FUNGAL INFECTION
     Dosage: USE ONE PREFILLED APPLICATOR
     Route: 067
     Dates: start: 20141024, end: 20141025
  2. MONISTAT [Suspect]
     Active Substance: MICONAZOLE NITRATE

REACTIONS (5)
  - Application site pain [None]
  - Dysuria [None]
  - Application site swelling [None]
  - Pain [None]
  - Application site erythema [None]

NARRATIVE: CASE EVENT DATE: 20141024
